FAERS Safety Report 5309483-6 (Version None)
Quarter: 2007Q2

REPORT INFORMATION
  Report Type: 
  Country: None (occurrence: None)
  Receive Date: 20070424
  Receipt Date: 20070411
  Transmission Date: 20071010
  Serious: Yes (Hospitalization)
  Sender: FDA-Public Use
  Company Number: US019870

PATIENT
  Age: 45 Year
  Sex: Female
  Weight: 63.6 kg

DRUGS (11)
  1. ACTIQ [Suspect]
     Indication: BONE PAIN
     Dosage: VARIOUS STRENGTHS
     Dates: start: 20040101, end: 20050101
  2. ACTIQ [Suspect]
     Indication: NEURALGIA
     Dosage: VARIOUS STRENGTHS
     Dates: start: 20040101, end: 20050101
  3. OXYCONTIN [Concomitant]
  4. TOPAMAX [Concomitant]
  5. WELLBUTRIN XL [Concomitant]
  6. ACTIVELLA [Concomitant]
  7. METHOTREXATE [Concomitant]
  8. PREDNISONE TAB [Concomitant]
  9. NEURONTIN [Concomitant]
  10. LIDODERM [Concomitant]
  11. IMMUNE GLOBULIN INTRAVENOUS (HUMAN) [Concomitant]

REACTIONS (6)
  - DENTAL CARIES [None]
  - OSTEOMYELITIS [None]
  - SENSITIVITY OF TEETH [None]
  - SINUSITIS [None]
  - TOOTH DISORDER [None]
  - TOOTH FRACTURE [None]
